FAERS Safety Report 22339817 (Version 1)
Quarter: 2023Q2

REPORT INFORMATION
  Report Type: Spontaneous
  Country: JP (occurrence: JP)
  Receive Date: 20230518
  Receipt Date: 20230518
  Transmission Date: 20230722
  Serious: Yes (Other)
  Sender: FDA-Public Use
  Company Number: JP-BAXTER-2023BAX021985

PATIENT
  Age: 79 Year
  Sex: Male

DRUGS (11)
  1. CYCLOPHOSPHAMIDE [Suspect]
     Active Substance: CYCLOPHOSPHAMIDE
     Indication: Factor VIII deficiency
     Dosage: 18 DAYS AFTER INITIATION OF PREDNISOLONE, THE PATIENT ADDITIONALLY STARTED RECEIVING ENDOXAN 50 MG/D
     Route: 065
  2. PREDONINE [Suspect]
     Active Substance: PREDNISOLONE
     Indication: Factor VIII deficiency
     Dosage: 1 MG/KG/DAY AS A FIRST CHOICE
     Route: 065
  3. PREDONINE [Suspect]
     Active Substance: PREDNISOLONE
     Dosage: UNK
     Route: 065
  4. CANAGLIFLOZIN [Concomitant]
     Active Substance: CANAGLIFLOZIN
     Route: 048
  5. SITAGLIPTIN [Concomitant]
     Active Substance: SITAGLIPTIN
     Route: 048
  6. BISOPROLOL FUMARATE [Concomitant]
     Active Substance: BISOPROLOL FUMARATE
     Route: 048
  7. NICORANDIL [Concomitant]
     Active Substance: NICORANDIL
     Route: 048
  8. ENALAPRIL MALEATE [Concomitant]
     Active Substance: ENALAPRIL MALEATE
     Route: 048
  9. PITAVASTATIN CALCIUM [Concomitant]
     Active Substance: PITAVASTATIN CALCIUM
     Route: 048
  10. RABEPRAZOLE SODIUM [Concomitant]
     Active Substance: RABEPRAZOLE SODIUM
     Route: 048
  11. MAGNESIUM OXIDE [Concomitant]
     Active Substance: MAGNESIUM OXIDE
     Route: 048

REACTIONS (2)
  - Cholecystitis acute [Recovering/Resolving]
  - Sepsis [Unknown]
